FAERS Safety Report 23319784 (Version 1)
Quarter: 2023Q4

REPORT INFORMATION
  Report Type: Spontaneous
  Country: GB (occurrence: GB)
  Receive Date: 20231220
  Receipt Date: 20231220
  Transmission Date: 20240110
  Serious: Yes (Other)
  Sender: FDA-Public Use
  Company Number: None

PATIENT
  Age: 62 Year
  Weight: 130 kg

DRUGS (23)
  1. TICAGRELOR [Suspect]
     Active Substance: TICAGRELOR
     Route: 065
     Dates: start: 20231118
  2. ASPIRIN [Concomitant]
     Active Substance: ASPIRIN
     Dosage: (WITH CLOPIDOGREL. FOR 12 MONTHS...
     Dates: start: 20231122
  3. METFORMIN [Concomitant]
     Active Substance: METFORMIN HYDROCHLORIDE
     Dosage: WITH EVENING MEAL
     Dates: start: 20220606
  4. CLOPIDOGREL [Concomitant]
     Active Substance: CLOPIDOGREL BISULFATE
     Dates: start: 20220606
  5. DEXTROSE [Concomitant]
     Active Substance: DEXTROSE\DEXTROSE MONOHYDRATE
     Dosage: RUB IN TO GUMS IF SIGNS+/OR SYMPTOMS OF LOW SUGAR
     Dates: start: 20230315
  6. OZEMPIC [Concomitant]
     Active Substance: SEMAGLUTIDE
     Dosage: AS DIRECTED
     Dates: start: 20210821
  7. BETAMETHASONE VALERATE [Concomitant]
     Active Substance: BETAMETHASONE VALERATE
     Dosage: APPLY TO AFFECTED SKIN BODY AND LIMBS ONL...
     Dates: start: 20210930
  8. HYDRALAZINE [Concomitant]
     Active Substance: HYDRALAZINE HYDROCHLORIDE
     Dates: start: 20220606
  9. ZERODERMA EMOLLIENT MEDICINAL BATH [Concomitant]
     Dosage: USE AS DIRECTED
     Dates: start: 20231122
  10. CAVERJECT [Concomitant]
     Active Substance: ALPROSTADIL
     Dosage: 20-40MG DOSE WHEN REQUIRED AS DIRECTED BY SPECI...
     Dates: start: 20220503
  11. ATORVASTATIN [Concomitant]
     Active Substance: ATORVASTATIN
     Dates: start: 20231122
  12. TADALAFIL [Concomitant]
     Active Substance: TADALAFIL
     Dosage: 30 MINS TO 12 HOURS BEFORE NEEDED
     Dates: start: 20220606
  13. VICTOZA [Concomitant]
     Active Substance: LIRAGLUTIDE
     Dates: start: 20230714
  14. LANSOPRAZOLE [Concomitant]
     Active Substance: LANSOPRAZOLE
     Dosage: MORNING
     Dates: start: 20220606
  15. HUMALOG [Concomitant]
     Active Substance: INSULIN LISPRO
     Dosage: USE AS DIRECTED
     Dates: start: 20220606
  16. NITROGLYCERIN [Concomitant]
     Active Substance: NITROGLYCERIN
     Dosage: TIME INTERVAL: AS NECESSARY: PUFF
     Dates: start: 20231122
  17. KETOCONAZOLE [Concomitant]
     Active Substance: KETOCONAZOLE
     Dosage: USE FOR FOUR WEEKS
     Dates: start: 20210930
  18. CHOLECALCIFEROL [Concomitant]
     Active Substance: CHOLECALCIFEROL
     Dates: start: 20220606
  19. NIFEDIPINE [Concomitant]
     Active Substance: NIFEDIPINE
     Dates: start: 20220531
  20. ZEROBASE [Concomitant]
     Dosage: USE AS DIRECTED
     Dates: start: 20231122
  21. ACETAMINOPHEN [Concomitant]
     Active Substance: ACETAMINOPHEN
     Dosage: ONE OR TWO TO BE TAKEN AS REQU...
     Dates: start: 20210930
  22. MACROGOL COMPOUND [Concomitant]
     Dosage: 1-3
     Dates: start: 20210824, end: 20231122
  23. LOSARTAN [Concomitant]
     Active Substance: LOSARTAN

REACTIONS (1)
  - Supraventricular tachycardia [Unknown]

NARRATIVE: CASE EVENT DATE: 20231118
